FAERS Safety Report 7754529-9 (Version None)
Quarter: 2011Q3

REPORT INFORMATION
  Report Type: 
  Country: None (occurrence: None)
  Receive Date: 20110915
  Receipt Date: 20101217
  Transmission Date: 20111222
  Serious: No
  Sender: FDA-Public Use
  Company Number: US-BAYER-2010-008859

PATIENT
  Age: 64 Year

DRUGS (5)
  1. ULTRAVIST 150 [Suspect]
     Indication: COMPUTERISED TOMOGRAM
     Dosage: 102 ML, ONCE
     Route: 042
     Dates: start: 20101217, end: 20101217
  2. ACTOS [Concomitant]
  3. GLIPIZIDE [Concomitant]
  4. READI-CAT [Concomitant]
     Dosage: UNK
  5. JANUVIA [Concomitant]

REACTIONS (1)
  - NAUSEA [None]
